APPROVED DRUG PRODUCT: TAMOXIFEN CITRATE
Active Ingredient: TAMOXIFEN CITRATE
Strength: EQ 10MG BASE
Dosage Form/Route: TABLET;ORAL
Application: A075740 | Product #001
Applicant: IVAX PHARMACEUTICALS INC SUB TEVA PHARMACEUTICALS USA
Approved: Feb 20, 2003 | RLD: No | RS: No | Type: DISCN